FAERS Safety Report 7105334-8 (Version None)
Quarter: 2010Q4

REPORT INFORMATION
  Report Type: 
  Country: None (occurrence: None)
  Receive Date: 20101116
  Receipt Date: 20101112
  Transmission Date: 20110411
  Serious: Yes (Hospitalization)
  Sender: FDA-Public Use
  Company Number: BR-AMGEN-KDC412071

PATIENT
  Sex: Male

DRUGS (4)
  1. DENOSUMAB [Suspect]
     Indication: METASTASES TO BONE
     Dosage: 120 MG, Q4WK
     Route: 058
     Dates: start: 20100414
  2. PREDNISONE [Suspect]
     Dosage: 10 MG, QD
     Route: 048
     Dates: start: 20080124
  3. CAPTOPRIL [Concomitant]
  4. PROPRANOLOL [Concomitant]

REACTIONS (1)
  - ABSCESS ORAL [None]
